FAERS Safety Report 5854410-6 (Version None)
Quarter: 2008Q3

REPORT INFORMATION
  Report Type: 
  Country: None (occurrence: None)
  Receive Date: 20080822
  Receipt Date: 20080806
  Transmission Date: 20090109
  Serious: No
  Sender: FDA-Public Use
  Company Number: US-BOEHRINGER INGELHEIM GMBH, GERMANY-2008-BP-12370BP

PATIENT
  Age: 69 Year
  Sex: Female

DRUGS (7)
  1. MIRAPEX [Suspect]
     Indication: RESTLESS LEGS SYNDROME
     Route: 048
     Dates: start: 20080601, end: 20080803
  2. WARFARIN SODIUM [Concomitant]
     Indication: CARDIAC VALVE DISEASE
  3. LISINOPRIL [Concomitant]
     Indication: HYPERTENSION
  4. METOPROLOL [Concomitant]
     Indication: HYPERTENSION
  5. FUROSEMIDE [Concomitant]
     Indication: HYPERTENSION
  6. POTASSIUM CHLORIDE [Concomitant]
  7. EVISTA [Concomitant]
     Indication: BONE DISORDER

REACTIONS (2)
  - CONDITION AGGRAVATED [None]
  - TINNITUS [None]
